FAERS Safety Report 6903831-9 (Version None)
Quarter: 2010Q3

REPORT INFORMATION
  Report Type: 
  Country: None (occurrence: None)
  Receive Date: 20100804
  Receipt Date: 20090121
  Transmission Date: 20110219
  Serious: No
  Sender: FDA-Public Use
  Company Number: US-PFIZER INC-2008088054

PATIENT
  Sex: Male
  Weight: 70.31 kg

DRUGS (6)
  1. LYRICA [Suspect]
     Indication: NECK PAIN
     Route: 048
     Dates: start: 20070101, end: 20081017
  2. LAMICTAL [Concomitant]
  3. ADDERALL 10 [Concomitant]
  4. WELLBUTRIN [Concomitant]
  5. ALBUTEROL [Concomitant]
  6. ALL OTHER THERAPEUTIC PRODUCTS [Concomitant]

REACTIONS (4)
  - ADVERSE REACTION [None]
  - FUNGAL SKIN INFECTION [None]
  - SKIN LESION [None]
  - UNEVALUABLE EVENT [None]
